FAERS Safety Report 21612606 (Version 1)
Quarter: 2022Q4

REPORT INFORMATION
  Report Type: Spontaneous
  Country: FR (occurrence: FR)
  Receive Date: 20221118
  Receipt Date: 20221118
  Transmission Date: 20230113
  Serious: Yes (Death, Other)
  Sender: FDA-Public Use
  Company Number: FR-AFSSAPS-AN20222291

PATIENT
  Age: 29 Year
  Sex: Female
  Weight: 90 kg

DRUGS (11)
  1. PANTOPRAZOLE [Suspect]
     Active Substance: PANTOPRAZOLE
     Indication: Product used for unknown indication
     Dosage: 40 MILLIGRAM, DAILY
     Route: 048
     Dates: start: 20220203, end: 20220204
  2. ACETAMINOPHEN [Suspect]
     Active Substance: ACETAMINOPHEN
     Indication: Abdominal pain
     Dosage: 2 GRAM, DAILY
     Route: 048
     Dates: start: 20220202, end: 20220204
  3. OFLOXACIN [Suspect]
     Active Substance: OFLOXACIN
     Indication: Colitis
     Dosage: 400 MILLIGRAM, DAILY
     Route: 065
     Dates: start: 20220119, end: 20220203
  4. ONDANSETRON [Suspect]
     Active Substance: ONDANSETRON
     Indication: Nausea
     Dosage: 4 MILLIGRAM
     Route: 040
     Dates: start: 20220203, end: 20220204
  5. PROPRANOLOL HYDROCHLORIDE [Suspect]
     Active Substance: PROPRANOLOL HYDROCHLORIDE
     Indication: Abdominal pain
     Dosage: 40 MILLIGRAM, DAILY
     Route: 048
     Dates: start: 20220204, end: 20220204
  6. TRIMEBUTINE [Suspect]
     Active Substance: TRIMEBUTINE
     Indication: Abdominal pain
     Dosage: 200 MILLIGRAM, DAILY, 02/02: 100MG IV AT 2:40 A.M. AND 9:50 A.M.
     Route: 040
     Dates: start: 20220202, end: 20220202
  7. TRIMEBUTINE [Suspect]
     Active Substance: TRIMEBUTINE
     Dosage: 100 MILLIGRAM, DAILY, 100MG IV AT 9:59 A.M.
     Route: 040
     Dates: start: 20220202, end: 20220202
  8. METRONIDAZOLE [Suspect]
     Active Substance: METRONIDAZOLE
     Indication: Colitis
     Dosage: 1000 MILLIGRAM, DAILY
     Route: 065
     Dates: start: 20220119, end: 20220203
  9. VANCOMYCIN [Suspect]
     Active Substance: VANCOMYCIN
     Indication: Clostridium difficile colitis
     Dosage: 3 DOSAGE FORM, IN TOTAL
     Route: 048
     Dates: start: 20220203, end: 20220204
  10. METOCLOPRAMIDE HYDROCHLORIDE [Concomitant]
     Active Substance: METOCLOPRAMIDE HYDROCHLORIDE
     Indication: Nausea
     Dosage: 10 MILLIGRAM, DAILY
     Route: 040
     Dates: start: 20220202, end: 20220202
  11. 1,3,5-TRIMETHOXYBENZENE [Concomitant]
     Active Substance: 1,3,5-TRIMETHOXYBENZENE
     Indication: Abdominal pain
     Dosage: 120 MILLIGRAM, DAILY
     Route: 040
     Dates: start: 20220202, end: 20220202

REACTIONS (2)
  - Cardio-respiratory arrest [Fatal]
  - Tachycardia [Not Recovered/Not Resolved]

NARRATIVE: CASE EVENT DATE: 20220204
